FAERS Safety Report 7153123-0 (Version None)
Quarter: 2010Q4

REPORT INFORMATION
  Report Type: 
  Country: None (occurrence: None)
  Receive Date: 20101213
  Receipt Date: 20101201
  Transmission Date: 20110411
  Serious: Yes (Hospitalization, Other)
  Sender: FDA-Public Use
  Company Number: PHHY2010US81682

PATIENT
  Age: 30 Year
  Sex: Female

DRUGS (6)
  1. METOPROLOL [Suspect]
  2. DILTIAZEM [Concomitant]
  3. AMIODARONE [Concomitant]
  4. CALCIUM [Concomitant]
  5. SODIUM CHLORIDE [Concomitant]
  6. SOYA OIL [Concomitant]
     Route: 042

REACTIONS (5)
  - ANURIA [None]
  - CARDIOGENIC SHOCK [None]
  - CONFUSIONAL STATE [None]
  - HYPOTENSION [None]
  - OVERDOSE [None]
